FAERS Safety Report 11844830 (Version 2)
Quarter: 2016Q1

REPORT INFORMATION
  Report Type: Spontaneous
  Country: US (occurrence: US)
  Receive Date: 20151217
  Receipt Date: 20160113
  Transmission Date: 20160526
  Serious: Yes (Death)
  Sender: FDA-Public Use
  Company Number: US-LPDUSPRD-20151002

PATIENT
  Age: 70 Year
  Sex: Female

DRUGS (2)
  1. CYCLOSPORINE INJECTION, USP (866-10) [Suspect]
     Active Substance: CYCLOSPORINE
     Dosage: DOSE NOT STATED
     Route: 065
     Dates: start: 201407
  2. PREDNISONE. [Suspect]
     Active Substance: PREDNISONE
     Dosage: 40 MG
     Route: 065
     Dates: start: 201405

REACTIONS (4)
  - Pneumonia [Fatal]
  - Bronchopulmonary aspergillosis [Fatal]
  - Septic shock [Fatal]
  - Multiple organ dysfunction syndrome [Fatal]

NARRATIVE: CASE EVENT DATE: 201408
